FAERS Safety Report 17123836 (Version 13)
Quarter: 2023Q2

REPORT INFORMATION
  Report Type: Spontaneous
  Country: ES (occurrence: ES)
  Receive Date: 20191206
  Receipt Date: 20230413
  Transmission Date: 20230721
  Serious: Yes (Death, Other)
  Sender: FDA-Public Use
  Company Number: ES-009507513-1904ESP005484

PATIENT
  Age: 91 Year
  Sex: Female

DRUGS (8)
  1. VANCOMYCIN HYDROCHLORIDE [Suspect]
     Active Substance: VANCOMYCIN HYDROCHLORIDE
     Indication: Clostridium difficile infection
     Dosage: UNK
  2. FIDAXOMICIN [Suspect]
     Active Substance: FIDAXOMICIN
     Indication: Clostridium difficile infection
     Dosage: UNK
     Route: 048
  3. FIDAXOMICIN [Suspect]
     Active Substance: FIDAXOMICIN
     Dosage: UNK
     Route: 048
  4. FIDAXOMICIN [Suspect]
     Active Substance: FIDAXOMICIN
     Dosage: UNK
     Route: 048
  5. FIDAXOMICIN [Suspect]
     Active Substance: FIDAXOMICIN
     Dosage: UNK
     Route: 048
  6. ZINPLAVA [Suspect]
     Active Substance: BEZLOTOXUMAB
     Indication: Clostridium difficile infection
     Dosage: UNK
  7. ZINPLAVA [Suspect]
     Active Substance: BEZLOTOXUMAB
     Indication: Prophylaxis
  8. BEZLOTOXUMAB [Suspect]
     Active Substance: BEZLOTOXUMAB
     Indication: Prophylaxis
     Dosage: UNK

REACTIONS (2)
  - Death [Fatal]
  - Clostridium difficile infection [Fatal]
